FAERS Safety Report 22242141 (Version 9)
Quarter: 2025Q2

REPORT INFORMATION
  Report Type: Report from Study
  Country: US (occurrence: US)
  Receive Date: 20230421
  Receipt Date: 20250611
  Transmission Date: 20250717
  Serious: Yes (Hospitalization)
  Sender: BOEHRINGER INGELHEIM
  Company Number: US-BoehringerIngelheim-2023-BI-229292

PATIENT
  Age: 81 Year
  Sex: Male

DRUGS (2)
  1. OFEV [Suspect]
     Active Substance: NINTEDANIB
     Indication: Idiopathic pulmonary fibrosis
     Dates: start: 20210524
  2. OFEV [Suspect]
     Active Substance: NINTEDANIB

REACTIONS (13)
  - Ulcer haemorrhage [Unknown]
  - Haemorrhage [Recovered/Resolved]
  - Flatulence [Unknown]
  - Respiratory tract congestion [Unknown]
  - Asbestosis [Unknown]
  - Epistaxis [Unknown]
  - Abdominal discomfort [Recovered/Resolved]
  - Sinusitis bacterial [Unknown]
  - Abdominal distension [Recovering/Resolving]
  - Sinusitis fungal [Unknown]
  - Arterial occlusive disease [Unknown]
  - Gastrointestinal sounds abnormal [Unknown]
  - Gastrointestinal disorder [Recovered/Resolved]

NARRATIVE: CASE EVENT DATE: 20210501
